FAERS Safety Report 20503074 (Version 1)
Quarter: 2022Q1

REPORT INFORMATION
  Report Type: Spontaneous
  Country: US (occurrence: US)
  Receive Date: 20220222
  Receipt Date: 20220222
  Transmission Date: 20220423
  Serious: Yes (Hospitalization, Other)
  Sender: FDA-Public Use
  Company Number: US-GLAXOSMITHKLINE-US2022GSK029222

PATIENT
  Sex: Male

DRUGS (4)
  1. ZANTAC [Suspect]
     Active Substance: RANITIDINE HYDROCHLORIDE
     Indication: Gastrooesophageal reflux disease
     Dosage: 75 MG, QD
     Route: 065
  2. ZANTAC [Suspect]
     Active Substance: RANITIDINE HYDROCHLORIDE
     Indication: Abdominal discomfort
  3. ZANTAC [Suspect]
     Active Substance: RANITIDINE HYDROCHLORIDE
     Indication: Gastrooesophageal reflux disease
     Dosage: 75 MG, QD
     Route: 065
  4. ZANTAC [Suspect]
     Active Substance: RANITIDINE HYDROCHLORIDE
     Indication: Abdominal discomfort

REACTIONS (31)
  - Renal cancer [Unknown]
  - Haematuria [Unknown]
  - Urethral dilatation [Unknown]
  - Urinary retention [Unknown]
  - Papillary renal cell carcinoma [Unknown]
  - Renal cell carcinoma [Unknown]
  - Hypertensive nephropathy [Unknown]
  - Renal failure [Unknown]
  - Haemorrhage urinary tract [Unknown]
  - Metastases to kidney [Unknown]
  - Chronic kidney disease [Unknown]
  - Renal cancer stage IV [Unknown]
  - Nephrosclerosis [Unknown]
  - Malignant renal hypertension [Unknown]
  - Renal impairment [Unknown]
  - Azotaemia [Unknown]
  - Congenital cystic kidney disease [Unknown]
  - Adenoma benign [Unknown]
  - Urinary tract disorder [Unknown]
  - Diabetic nephropathy [Unknown]
  - Renal neoplasm [Unknown]
  - Renal disorder [Unknown]
  - Renal cyst [Unknown]
  - Ureteral disorder [Unknown]
  - Proteinuria [Unknown]
  - Renal mass [Unknown]
  - Nephropathy [Unknown]
  - Dysuria [Unknown]
  - Nocturia [Unknown]
  - Renal disorder [Unknown]
  - Hydronephrosis [Unknown]
